FAERS Safety Report 19132052 (Version 1)
Quarter: 2021Q2

REPORT INFORMATION
  Report Type: Spontaneous
  Country: US (occurrence: US)
  Receive Date: 20210413
  Receipt Date: 20210413
  Transmission Date: 20210717
  Serious: No
  Sender: FDA-Public Use
  Company Number: US-TEVA-2021-US-1881042

PATIENT
  Sex: Male

DRUGS (2)
  1. ARMODAFINIL TEVA [Suspect]
     Active Substance: ARMODAFINIL
     Indication: SLEEP APNOEA SYNDROME
     Route: 065
     Dates: start: 2021
  2. ARMODAFINIL TEVA [Suspect]
     Active Substance: ARMODAFINIL
     Indication: SLEEP DISORDER
     Route: 065

REACTIONS (3)
  - Fatigue [Unknown]
  - Drug ineffective [Unknown]
  - Dizziness [Unknown]

NARRATIVE: CASE EVENT DATE: 2021
